FAERS Safety Report 18498657 (Version 1)
Quarter: 2020Q4

REPORT INFORMATION
  Report Type: Other
  Country: BR (occurrence: BR)
  Receive Date: 20201113
  Receipt Date: 20201113
  Transmission Date: 20210114
  Serious: Yes (Other)
  Sender: FDA-Public Use
  Company Number: BR-ROCHE-2712262

PATIENT
  Age: 6 Year
  Sex: Female

DRUGS (2)
  1. ALTEPLASE. [Suspect]
     Active Substance: ALTEPLASE
     Indication: HEPATIC ARTERY THROMBOSIS
     Dosage: 0.3 MG/KG/H) OVER 6 H/DAILY, FOR 5 DAYS
     Route: 042
  2. HEPARIN [Concomitant]
     Active Substance: HEPARIN SODIUM

REACTIONS (2)
  - Bile duct stenosis [Recovered/Resolved]
  - Catheter site haemorrhage [Recovered/Resolved]
